FAERS Safety Report 15391902 (Version 4)
Quarter: 2022Q2

REPORT INFORMATION
  Report Type: Spontaneous
  Country: US (occurrence: US)
  Receive Date: 20180917
  Receipt Date: 20220513
  Transmission Date: 20220721
  Serious: No
  Sender: FDA-Public Use
  Company Number: US-PFIZER INC-2018369182

PATIENT
  Age: 52 Year
  Sex: Female

DRUGS (12)
  1. CELEBREX [Suspect]
     Active Substance: CELECOXIB
     Indication: Back pain
     Dosage: UNK
  2. CELECOXIB [Suspect]
     Active Substance: CELECOXIB
     Indication: Back pain
     Dosage: 200 MG, 2X/DAY
     Route: 048
  3. CELECOXIB [Suspect]
     Active Substance: CELECOXIB
     Indication: Arthritis
  4. MOBIC [Suspect]
     Active Substance: MELOXICAM
     Indication: Back pain
     Dosage: UNK
     Dates: end: 2010
  5. MOBIC [Suspect]
     Active Substance: MELOXICAM
     Indication: Arthritis
  6. MELOXICAM [Suspect]
     Active Substance: MELOXICAM
     Indication: Back pain
     Dosage: UNK
     Dates: end: 2010
  7. MELOXICAM [Suspect]
     Active Substance: MELOXICAM
     Indication: Arthritis
  8. NAPROXEN [Suspect]
     Active Substance: NAPROXEN
     Indication: Back pain
     Dosage: UNK
  9. NAPROXEN [Suspect]
     Active Substance: NAPROXEN
     Indication: Arthritis
  10. TYLENOL [Concomitant]
     Active Substance: ACETAMINOPHEN
     Dosage: UNK
  11. ULTRAM [Concomitant]
     Active Substance: TRAMADOL HYDROCHLORIDE
     Dosage: UNK
  12. VICODIN [Concomitant]
     Active Substance: ACETAMINOPHEN\HYDROCODONE BITARTRATE
     Dosage: UNK(500/5 MG)

REACTIONS (7)
  - Abdominal discomfort [Recovered/Resolved]
  - Eating disorder [Recovered/Resolved]
  - Nausea [Recovered/Resolved]
  - Vomiting [Recovered/Resolved]
  - Blister [Recovered/Resolved]
  - Skin exfoliation [Recovered/Resolved]
  - Illness [Unknown]

NARRATIVE: CASE EVENT DATE: 20060101
